FAERS Safety Report 14757687 (Version 4)
Quarter: 2019Q3

REPORT INFORMATION
  Report Type: Spontaneous
  Country: US (occurrence: US)
  Receive Date: 20180413
  Receipt Date: 20190826
  Transmission Date: 20191004
  Serious: Yes (Other)
  Sender: FDA-Public Use
  Company Number: US-TAKEDA-2018TUS009569

PATIENT

DRUGS (57)
  1. PREVACID [Suspect]
     Active Substance: LANSOPRAZOLE
     Dosage: UNK
     Route: 048
     Dates: start: 199301, end: 201312
  2. LANSOPRAZOLE. [Suspect]
     Active Substance: LANSOPRAZOLE
     Dosage: 15 MILLIGRAM, QD
     Route: 048
  3. PRILOSEC [Suspect]
     Active Substance: OMEPRAZOLE MAGNESIUM
     Dosage: 20 MG, DAILY
     Route: 048
     Dates: start: 20010101, end: 20111231
  4. NEXIUM [Suspect]
     Active Substance: ESOMEPRAZOLE MAGNESIUM
     Indication: GASTROOESOPHAGEAL REFLUX DISEASE
     Dosage: 40 MG, 1X/DAY
     Route: 048
     Dates: start: 200101, end: 201112
  5. NEXIUM [Suspect]
     Active Substance: ESOMEPRAZOLE MAGNESIUM
     Dosage: UNK
     Route: 048
     Dates: start: 199301, end: 201312
  6. NEXIUM 24HR [Suspect]
     Active Substance: ESOMEPRAZOLE MAGNESIUM
     Dosage: 20 MILLIGRAM, QD
     Route: 048
  7. OMEPRAZOLE. [Suspect]
     Active Substance: OMEPRAZOLE
     Dosage: 20 MG, 1X/DAY
     Route: 048
  8. OMEPRAZOLE MAGNESIUM. [Suspect]
     Active Substance: OMEPRAZOLE MAGNESIUM
     Indication: PRODUCT USED FOR UNKNOWN INDICATION
     Dosage: UNK
     Route: 048
     Dates: start: 199301, end: 201312
  9. OMEPRAZOLE MAGNESIUM. [Suspect]
     Active Substance: OMEPRAZOLE MAGNESIUM
     Dosage: 20 MG, DAILY
     Route: 048
  10. ACIPHEX [Suspect]
     Active Substance: RABEPRAZOLE SODIUM
     Indication: GASTROOESOPHAGEAL REFLUX DISEASE
     Dosage: 20 MG, DAILY
     Route: 048
     Dates: start: 2001, end: 2011
  11. VITAMIN D [Concomitant]
     Active Substance: VITAMIN D NOS
     Indication: ROUTINE HEALTH MAINTENANCE
     Dosage: UNK UNK, AS NEEDED
  12. FISH OIL [Concomitant]
     Active Substance: FISH OIL
     Indication: ROUTINE HEALTH MAINTENANCE
     Dosage: UNK UNK, AS NEEDED
  13. FAMOTIDINE. [Concomitant]
     Active Substance: FAMOTIDINE
     Dosage: UNK
     Dates: start: 2001
  14. RANITIDINE. [Concomitant]
     Active Substance: RANITIDINE
     Dosage: UNK
  15. MYLANTA [Concomitant]
     Active Substance: ALUMINUM HYDROXIDE\DIMETHICONE\MAGNESIUM HYDROXIDE
     Indication: ANTACID THERAPY
     Dosage: UNK, 3X/DAY
  16. ESOMEPRAZOLE. [Suspect]
     Active Substance: ESOMEPRAZOLE MAGNESIUM
     Indication: PRODUCT USED FOR UNKNOWN INDICATION
     Dosage: UNK
     Route: 048
  17. OMEPRAZOLE. [Suspect]
     Active Substance: OMEPRAZOLE
     Indication: PRODUCT USED FOR UNKNOWN INDICATION
     Dosage: 20 MILLIGRAM, QD
     Route: 048
  18. TAGAMET HB (OTC) [Concomitant]
     Dosage: UNK
  19. CIMETIDINE [Concomitant]
     Active Substance: CIMETIDINE
     Dosage: UNK
     Dates: start: 2001
  20. PREVACID 24 HR [Suspect]
     Active Substance: LANSOPRAZOLE
     Indication: GASTROOESOPHAGEAL REFLUX DISEASE
     Dosage: UNK
     Route: 048
     Dates: start: 199301, end: 201312
  21. IBUPROFEN. [Concomitant]
     Active Substance: IBUPROFEN
     Indication: PAIN
     Dosage: UNK UNK, AS NEEDED
  22. FAMOTIDINE, CALCIUM CARBONATE AND MAGNESIUM HYDROXIDE (OTC) [Concomitant]
     Dosage: UNK
  23. PEPCID COMPLETE [Concomitant]
     Active Substance: CALCIUM CARBONATE\FAMOTIDINE\MAGNESIUM HYDROXIDE
     Dosage: UNK
  24. TUMS [Concomitant]
     Active Substance: CALCIUM CARBONATE
     Indication: ANTACID THERAPY
     Dosage: UNK UNK, 3X/DAY
     Dates: start: 2005
  25. PREVACID [Suspect]
     Active Substance: LANSOPRAZOLE
     Dosage: 30 MG, DAILY
     Route: 048
     Dates: start: 20010101, end: 20111231
  26. PREVACID 24 HR [Suspect]
     Active Substance: LANSOPRAZOLE
     Dosage: UNK
     Route: 048
     Dates: start: 200101, end: 201112
  27. VITAMIN C [Concomitant]
     Active Substance: ASCORBIC ACID
     Indication: ROUTINE HEALTH MAINTENANCE
     Dosage: UNK UNK, AS NEEDED
  28. PEPCID AC [Concomitant]
     Active Substance: FAMOTIDINE
     Dosage: UNK
     Dates: start: 2001
  29. PREVACID 24 HR [Suspect]
     Active Substance: LANSOPRAZOLE
     Dosage: 20 MG, DAILY
     Route: 048
     Dates: start: 20090518, end: 20111231
  30. PRILOSEC [Suspect]
     Active Substance: OMEPRAZOLE MAGNESIUM
     Indication: GASTROOESOPHAGEAL REFLUX DISEASE
     Dosage: 40 MG, 1X/DAY
     Route: 048
     Dates: start: 200101, end: 201112
  31. PRILOSEC [Suspect]
     Active Substance: OMEPRAZOLE MAGNESIUM
     Dosage: UNK
     Route: 048
     Dates: start: 199301, end: 201312
  32. NEXIUM 24HR [Suspect]
     Active Substance: ESOMEPRAZOLE MAGNESIUM
     Indication: GASTROOESOPHAGEAL REFLUX DISEASE
     Dosage: UNK
     Route: 048
     Dates: start: 200101, end: 201112
  33. ASPIRIN. [Concomitant]
     Active Substance: ASPIRIN
     Indication: ROUTINE HEALTH MAINTENANCE
     Dosage: UNK, AS NEEDED
  34. VITAMIN B [Concomitant]
     Active Substance: VITAMIN B
     Indication: ROUTINE HEALTH MAINTENANCE
     Dosage: UNK UNK, AS NEEDED
  35. VITAMIN E [Concomitant]
     Active Substance: .ALPHA.-TOCOPHEROL
     Indication: ROUTINE HEALTH MAINTENANCE
     Dosage: UNK UNK, AS NEEDED
  36. CIMETIDINE (OTC) [Concomitant]
     Dosage: UNK
     Dates: start: 2001
  37. PREVACID [Suspect]
     Active Substance: LANSOPRAZOLE
     Indication: GASTROOESOPHAGEAL REFLUX DISEASE
     Dosage: 40 MG, 1X/DAY
     Route: 048
     Dates: start: 200101, end: 201112
  38. PREVACID 24 HR [Suspect]
     Active Substance: LANSOPRAZOLE
     Dosage: 15 MILLIGRAM, QD
     Route: 048
  39. PANTOPRAZOLE [Suspect]
     Active Substance: PANTOPRAZOLE
     Dosage: UNK
     Route: 048
  40. NEXIUM 24HR [Suspect]
     Active Substance: ESOMEPRAZOLE MAGNESIUM
     Dosage: 20 MG, DAILY
     Route: 048
  41. OMEPRAZOLE MAGNESIUM. [Suspect]
     Active Substance: OMEPRAZOLE MAGNESIUM
     Dosage: UNK
     Route: 048
     Dates: start: 200101, end: 201112
  42. VITAMIN A [Concomitant]
     Active Substance: VITAMIN A
     Indication: ROUTINE HEALTH MAINTENANCE
     Dosage: UNK UNK, AS NEEDED
  43. DEXILANT [Suspect]
     Active Substance: DEXLANSOPRAZOLE
     Indication: PRODUCT USED FOR UNKNOWN INDICATION
     Dosage: UNK
     Route: 048
     Dates: start: 200101, end: 201112
  44. PREVACID 24 HR [Suspect]
     Active Substance: LANSOPRAZOLE
     Dosage: 15 MG, 1X/DAY
     Route: 048
  45. NEXIUM [Suspect]
     Active Substance: ESOMEPRAZOLE MAGNESIUM
     Dosage: 40 MG, DAILY
     Route: 048
     Dates: start: 20010220, end: 20111231
  46. ESOMEPRAZOLE. [Suspect]
     Active Substance: ESOMEPRAZOLE MAGNESIUM
     Dosage: UNK
     Route: 048
  47. ZANTAC 150 (OTC) [Concomitant]
     Dosage: UNK
  48. ROLAIDS [Concomitant]
     Active Substance: CALCIUM CARBONATE\MAGNESIUM HYDROXIDE
     Indication: ANTACID THERAPY
     Dosage: UNK UNK, 3X/DAY
     Dates: start: 2005
  49. PROTONIX [Suspect]
     Active Substance: PANTOPRAZOLE SODIUM
     Indication: PRODUCT USED FOR UNKNOWN INDICATION
     Dosage: UNK
     Route: 048
     Dates: start: 200101, end: 201112
  50. LANSOPRAZOLE. [Suspect]
     Active Substance: LANSOPRAZOLE
     Indication: PRODUCT USED FOR UNKNOWN INDICATION
     Dosage: UNK
     Route: 048
  51. LANSOPRAZOLE. [Suspect]
     Active Substance: LANSOPRAZOLE
     Dosage: UNK
     Route: 048
  52. PANTOPRAZOLE [Suspect]
     Active Substance: PANTOPRAZOLE
     Dosage: UNK
     Route: 048
  53. NEXIUM 24HR [Suspect]
     Active Substance: ESOMEPRAZOLE MAGNESIUM
     Dosage: 20 MG, DAILY
     Route: 048
     Dates: end: 20171231
  54. ZEGERID [Suspect]
     Active Substance: OMEPRAZOLE\SODIUM BICARBONATE
     Indication: GASTROOESOPHAGEAL REFLUX DISEASE
     Dosage: 20 MG, DAILY
     Route: 048
     Dates: start: 2001, end: 2011
  55. ZEGERID OTC [Suspect]
     Active Substance: OMEPRAZOLE\SODIUM BICARBONATE
     Indication: GASTROOESOPHAGEAL REFLUX DISEASE
     Dosage: 20 MG, DAILY
     Route: 048
     Dates: start: 2001, end: 2011
  56. ZANTAC 75 (OTC) [Concomitant]
     Dosage: UNK
     Dates: start: 2001
  57. MAALOX ANTACID [Concomitant]
     Active Substance: ALUMINUM HYDROXIDE\DIMETHICONE\MAGNESIUM HYDROXIDE
     Indication: ANTACID THERAPY
     Dosage: UNK, 3X/DAY
     Dates: start: 2005

REACTIONS (3)
  - Gastrooesophageal reflux disease [Not Recovered/Not Resolved]
  - Chronic kidney disease [Not Recovered/Not Resolved]
  - Tubulointerstitial nephritis [Not Recovered/Not Resolved]

NARRATIVE: CASE EVENT DATE: 2005
